FAERS Safety Report 8846408 (Version 4)
Quarter: 2012Q4

REPORT INFORMATION
  Report Type: 
  Country: US (occurrence: US)
  Receive Date: 20121018
  Receipt Date: 20121217
  Transmission Date: 20130627
  Serious: Yes (Hospitalization, Other)
  Sender: FDA-Public Use
  Company Number: US-AMGEN-USASP2012065306

PATIENT
  Age: 63 Year
  Sex: Female
  Weight: 70.75 kg

DRUGS (1)
  1. ENBREL [Suspect]
     Indication: RHEUMATOID ARTHRITIS
     Dosage: 25 mg, qwk
     Route: 058
     Dates: start: 1998, end: 20120926

REACTIONS (17)
  - Rectal haemorrhage [Recovered/Resolved]
  - Glaucoma [Unknown]
  - Bunion [Recovered/Resolved]
  - Impaired healing [Not Recovered/Not Resolved]
  - Bone disorder [Recovered/Resolved]
  - Oedema peripheral [Not Recovered/Not Resolved]
  - Vein discolouration [Recovered/Resolved]
  - Neuroma [Not Recovered/Not Resolved]
  - Upper extremity mass [Not Recovered/Not Resolved]
  - Hand deformity [Not Recovered/Not Resolved]
  - Asthenia [Not Recovered/Not Resolved]
  - Skin haemorrhage [Recovered/Resolved]
  - Drug effect incomplete [Not Recovered/Not Resolved]
  - Pain [Not Recovered/Not Resolved]
  - Rash [Recovered/Resolved]
  - Hypothyroidism [Unknown]
  - Injection site pain [Recovered/Resolved]
